FAERS Safety Report 7823886-7 (Version None)
Quarter: 2011Q4

REPORT INFORMATION
  Report Type: 
  Country: None (occurrence: None)
  Receive Date: 20111014
  Receipt Date: 20111003
  Transmission Date: 20120403
  Serious: Yes (Hospitalization, Other)
  Sender: FDA-Public Use
  Company Number: GB-ACCORD-010641

PATIENT
  Age: 20 Month
  Sex: Male
  Weight: 13 kg

DRUGS (6)
  1. METHYLPREDNISOLONE(METHYLPREDNISOLE) [Concomitant]
  2. AZATHIOPRINE [Concomitant]
  3. TACROLIMUS [Suspect]
     Indication: IMMUNOSUPPRESSION
     Dosage: 2.50 MG
  4. PREDNISOLONE [Concomitant]
  5. CASPOFUNGIN ACETATE [Concomitant]
  6. FLUCONAZOLE [Suspect]
     Indication: FUNGAL PERITONITIS
     Dosage: 3.00 MG/KG; INTRAVENOUS (NOT OTHERWISE SPECIFIED)
     Route: 042

REACTIONS (10)
  - DEPRESSED LEVEL OF CONSCIOUSNESS [None]
  - TOXICITY TO VARIOUS AGENTS [None]
  - URETERIC OBSTRUCTION [None]
  - COMPLICATIONS OF TRANSPLANTED KIDNEY [None]
  - DRUG INTERACTION [None]
  - POST PROCEDURAL COMPLICATION [None]
  - SEPTIC SHOCK [None]
  - STRABISMUS [None]
  - FUNGAL PERITONITIS [None]
  - ASCITES [None]
